FAERS Safety Report 21196293 (Version 1)
Quarter: 2022Q3

REPORT INFORMATION
  Report Type: Spontaneous
  Country: US (occurrence: US)
  Receive Date: 20220810
  Receipt Date: 20220810
  Transmission Date: 20221027
  Serious: Yes (Death, Other)
  Sender: FDA-Public Use
  Company Number: US-NORTHSTAR HEALTHCARE HOLDINGS-US-2022NSR000045

PATIENT
  Sex: Female

DRUGS (15)
  1. PROPRANOLOL HYDROCHLORIDE [Suspect]
     Active Substance: PROPRANOLOL HYDROCHLORIDE
     Indication: Atrial tachycardia
     Dosage: 1 MG/KG, QD, DIVIDED EVERY 6 HOURS FROM POD 11
     Route: 065
  2. DIGOXIN [Suspect]
     Active Substance: DIGOXIN
     Indication: Atrial tachycardia
     Dosage: 16 MICROGRAM/KILOGRAM
     Route: 065
  3. DIGOXIN [Suspect]
     Active Substance: DIGOXIN
     Dosage: 3 MICROGRAM/KILOGRAM, BID
     Route: 065
  4. SOTALOL [Suspect]
     Active Substance: SOTALOL
     Indication: Atrial tachycardia
     Dosage: 12 MG/M2, Q8H
     Route: 065
  5. AMIODARONE [Suspect]
     Active Substance: AMIODARONE
     Indication: Atrial tachycardia
     Dosage: 7 MICROGRAM/KILOGRAM/MIN, ON POD 10
     Route: 042
  6. AMIODARONE [Suspect]
     Active Substance: AMIODARONE
     Dosage: UNK, PRN
     Route: 040
  7. AMIODARONE [Suspect]
     Active Substance: AMIODARONE
     Dosage: 3.5 MICROGRAM/KILOGRAM/MIN, ON POD 12, MAINTENANCE DOSING
     Route: 042
  8. AMIODARONE [Suspect]
     Active Substance: AMIODARONE
     Dosage: 1 MG/KG (10 TOTAL DOSES)
     Route: 040
  9. AMIODARONE [Suspect]
     Active Substance: AMIODARONE
     Dosage: 7.5 MICROGRAM/KILOGRAM/MIN
     Route: 042
  10. ESMOLOL [Suspect]
     Active Substance: ESMOLOL HYDROCHLORIDE
     Indication: Atrial tachycardia
     Dosage: UNK
     Route: 042
  11. ESMOLOL [Suspect]
     Active Substance: ESMOLOL HYDROCHLORIDE
     Dosage: UP TO 250 MCG/KG/MIN
     Route: 042
  12. PROCAINAMIDE HYDROCHLORIDE [Suspect]
     Active Substance: PROCAINAMIDE HYDROCHLORIDE
     Indication: Atrial tachycardia
     Dosage: 15 MG/KG
     Route: 040
  13. PROCAINAMIDE HYDROCHLORIDE [Suspect]
     Active Substance: PROCAINAMIDE HYDROCHLORIDE
     Dosage: 40 MICROGRAM/KILOGRAM/MIN
     Route: 042
  14. IVABRADINE [Suspect]
     Active Substance: IVABRADINE
     Indication: Atrial tachycardia
     Dosage: 0.1 MG/KG, BID
     Route: 065
  15. IVABRADINE [Suspect]
     Active Substance: IVABRADINE
     Dosage: 0.1 MG/KG, TID
     Route: 065

REACTIONS (1)
  - Bradycardia [Fatal]
